FAERS Safety Report 4895506-5 (Version None)
Quarter: 2006Q1

REPORT INFORMATION
  Report Type: 
  Country: None (occurrence: None)
  Receive Date: 20060125
  Receipt Date: 20060117
  Transmission Date: 20060701
  Serious: Yes (Other)
  Sender: FDA-Public Use
  Company Number: 2005113827

PATIENT
  Age: 48 Year
  Sex: Male
  Weight: 78.9 kg

DRUGS (10)
  1. CELEBREX [Suspect]
     Indication: ILL-DEFINED DISORDER
     Dosage: (200 MG, UNKNOWN)
     Dates: start: 19990101
  2. CARDIZEM CD [Concomitant]
  3. ISORDIL [Concomitant]
  4. ZANTAC [Concomitant]
  5. NORVASC [Concomitant]
  6. ALTACE [Concomitant]
  7. HUMULIN R [Concomitant]
  8. DARVOCET-N 100 [Concomitant]
  9. LIPITOR [Concomitant]
  10. ASPIRIN [Concomitant]

REACTIONS (5)
  - ARTERIOSCLEROSIS CORONARY ARTERY [None]
  - CARDIAC DISORDER [None]
  - CARDIOMYOPATHY [None]
  - CEREBROVASCULAR ACCIDENT [None]
  - MYOCARDIAL INFARCTION [None]
